FAERS Safety Report 25075745 (Version 1)
Quarter: 2025Q1

REPORT INFORMATION
  Report Type: Spontaneous
  Country: US (occurrence: None)
  Receive Date: 20250313
  Receipt Date: 20250313
  Transmission Date: 20250409
  Serious: Yes (Hospitalization, Other)
  Sender: FDA-CTU
  Company Number: None

PATIENT
  Age: 18 Year
  Sex: Female
  Weight: 49.05 kg

DRUGS (13)
  1. GAMMAKED [Suspect]
     Active Substance: HUMAN IMMUNOGLOBULIN G
     Indication: Immunodeficiency common variable
  2. 0.9% sodium chloride 10mL pre-filled syringe [Concomitant]
  3. Acetaminophen 325mg [Concomitant]
  4. DIPHENHYDRAMINE [Concomitant]
     Active Substance: DIPHENHYDRAMINE
  5. Bag EVA Gravity 3-leg 1000ml [Concomitant]
  6. Catheter IV SS 22Gx1^ [Concomitant]
  7. Catheter IV SS 24Gx3/4^ [Concomitant]
  8. Band-aid adhesive fabric strip [Concomitant]
  9. IV Start Kit w/ Chloroprep [Concomitant]
  10. Extension set 7^ [Concomitant]
  11. Tubing Curlin Non-DEHP/non-vented [Concomitant]
  12. BD syringe 10 ml 21Gx1^ [Concomitant]
  13. Needleless MaxPlus connector [Concomitant]

REACTIONS (4)
  - Rash [None]
  - Urticaria [None]
  - Infusion related reaction [None]
  - Product quality issue [None]

NARRATIVE: CASE EVENT DATE: 20250307
